FAERS Safety Report 6733850-7 (Version None)
Quarter: 2010Q2

REPORT INFORMATION
  Report Type: 
  Country: None (occurrence: None)
  Receive Date: 20100520
  Receipt Date: 20100511
  Transmission Date: 20101027
  Serious: Yes (Other)
  Sender: FDA-Public Use
  Company Number: JP-ROCHE-679211

PATIENT
  Sex: Male
  Weight: 56 kg

DRUGS (9)
  1. CELLCEPT [Suspect]
     Indication: PROPHYLAXIS AGAINST TRANSPLANT REJECTION
     Route: 048
     Dates: start: 20020122, end: 20070222
  2. CELLCEPT [Suspect]
     Route: 048
     Dates: start: 20070222, end: 20091014
  3. CELLCEPT [Suspect]
     Route: 048
     Dates: start: 20091014
  4. CYCLOSPORINE [Concomitant]
  5. METHYLPREDNISOLONE 4MG TAB [Concomitant]
     Dosage: DOSE FORM: UNCERTAINTY
     Route: 065
  6. NEORAL [Concomitant]
     Route: 048
     Dates: start: 20020122
  7. ZANTAC [Concomitant]
     Route: 048
     Dates: start: 20020122
  8. NORVASC [Concomitant]
     Route: 048
     Dates: start: 20020122
  9. CANDESARTAN CILEXETIL [Concomitant]
     Route: 048
     Dates: start: 20020122

REACTIONS (1)
  - PROSTATE CANCER [None]
